FAERS Safety Report 11529005 (Version 1)
Quarter: 2015Q3

REPORT INFORMATION
  Report Type: Spontaneous
  Country: US (occurrence: None)
  Receive Date: 20150918
  Receipt Date: 20150918
  Transmission Date: 20151125
  Serious: Yes (Other)
  Sender: FDA-Public Use
  Company Number: None

PATIENT
  Age: 56 Year
  Sex: Male

DRUGS (1)
  1. STELARA [Suspect]
     Active Substance: USTEKINUMAB
     Indication: PSORIASIS
     Dosage: 90MG ONCE EVERY 12 WEEKS SUBCUTANEOUSLY
     Route: 058
     Dates: start: 20150304, end: 20150916

REACTIONS (1)
  - Therapy change [None]

NARRATIVE: CASE EVENT DATE: 20150916
